FAERS Safety Report 15802439 (Version 1)
Quarter: 2019Q1

REPORT INFORMATION
  Report Type: Spontaneous
  Country: US (occurrence: US)
  Receive Date: 20190106
  Receipt Date: 20190106
  Transmission Date: 20190417
  Serious: Yes (Disabling, Other)
  Sender: FDA-Public Use
  Company Number: None

PATIENT
  Age: 28 Year
  Sex: Female
  Weight: 58.97 kg

DRUGS (6)
  1. VITAMIN C [Concomitant]
     Active Substance: ASCORBIC ACID
  2. COPPER-CONTAINING INTRAUTERINE DEVICE (IUD) [Suspect]
     Active Substance: COPPER
     Dates: start: 20120101, end: 20180801
  3. CALCIUM [Concomitant]
     Active Substance: CALCIUM
  4. VITAMIN D [Concomitant]
     Active Substance: CHOLECALCIFEROL
  5. CBD [Concomitant]
     Active Substance: CANNABIDIOL
  6. PROBIOTICS [Concomitant]
     Active Substance: PROBIOTICS NOS

REACTIONS (7)
  - Headache [None]
  - Ocular hyperaemia [None]
  - Fatigue [None]
  - Decreased activity [None]
  - Pain [None]
  - Hypoaesthesia [None]
  - Loss of employment [None]

NARRATIVE: CASE EVENT DATE: 20180601
